FAERS Safety Report 8910925 (Version 2)
Quarter: 2013Q1

REPORT INFORMATION
  Report Type: Spontaneous
  Country: US (occurrence: US)
  Receive Date: 20121115
  Receipt Date: 20130114
  Transmission Date: 20140127
  Serious: Yes (Death)
  Sender: FDA-Public Use
  Company Number: US-PFIZER INC-2012285137

PATIENT
  Age: 72 Year
  Sex: Male

DRUGS (2)
  1. RAPAMUNE [Suspect]
     Indication: HEART TRANSPLANT
     Dosage: 2 MG, 1X/DAY
     Dates: start: 20111005
  2. RAPAMUNE [Suspect]
     Indication: IMMUNOSUPPRESSION
     Dosage: UNK, 3AM/3PM
     Route: 048
     Dates: start: 20030815

REACTIONS (2)
  - Cerebrovascular accident [Fatal]
  - Off label use [Fatal]
